FAERS Safety Report 9060876 (Version 1)
Quarter: 2013Q1

REPORT INFORMATION
  Report Type: Spontaneous
  Country: SG (occurrence: SG)
  Receive Date: 20130204
  Receipt Date: 20130204
  Transmission Date: 20140127
  Serious: Yes (Other)
  Sender: FDA-Public Use
  Company Number: SG-ELI_LILLY_AND_COMPANY-SG201212007212

PATIENT
  Age: 11 Year
  Sex: Female

DRUGS (5)
  1. GEMCITABINE HYDROCHLORIDE [Suspect]
     Indication: BONE SARCOMA
     Dosage: 900 MG/M2, OTHER
  2. GEMCITABINE HYDROCHLORIDE [Suspect]
     Dosage: 675 MG/M2, OTHER
  3. DOCETAXEL [Concomitant]
     Indication: BONE SARCOMA
     Dosage: 100 MG/M2, OTHER
  4. CO-TRIMOXAZOLE [Concomitant]
     Indication: BONE SARCOMA
  5. PENTAMIDINE [Concomitant]
     Route: 055

REACTIONS (4)
  - Toxic skin eruption [Recovering/Resolving]
  - Febrile neutropenia [Unknown]
  - Diarrhoea [Unknown]
  - Mouth ulceration [Unknown]
